FAERS Safety Report 10477262 (Version 4)
Quarter: 2014Q4

REPORT INFORMATION
  Report Type: Spontaneous
  Country: JP (occurrence: JP)
  Receive Date: 20140926
  Receipt Date: 20141229
  Transmission Date: 20150528
  Serious: Yes (Death, Hospitalization)
  Sender: FDA-Public Use
  Company Number: JP-ROCHE-1457693

PATIENT
  Age: 80 Year
  Sex: Male
  Weight: 54 kg

DRUGS (6)
  1. ELPLAT [Suspect]
     Active Substance: OXALIPLATIN
     Indication: COLON CANCER RECURRENT
     Route: 041
     Dates: start: 20131016, end: 20140529
  2. NEXIUM [Concomitant]
     Active Substance: ESOMEPRAZOLE MAGNESIUM
     Indication: GASTRITIS
     Route: 048
     Dates: start: 20130617, end: 20140625
  3. XELODA [Suspect]
     Active Substance: CAPECITABINE
     Indication: COLON CANCER RECURRENT
     Route: 048
     Dates: start: 20131016, end: 20140529
  4. FEROTYM [Concomitant]
     Active Substance: FERROUS CITRATE\SODIUM
     Indication: ANAEMIA
     Route: 048
     Dates: start: 20130617, end: 20140625
  5. XELODA [Suspect]
     Active Substance: CAPECITABINE
     Indication: COLON CANCER RECURRENT
     Dosage: DOSAGE IS UNCERTAIN.
     Route: 048
     Dates: start: 20130617, end: 2013
  6. AVASTIN [Suspect]
     Active Substance: BEVACIZUMAB
     Indication: COLON CANCER RECURRENT
     Route: 041
     Dates: start: 20131016, end: 20140529

REACTIONS (7)
  - Malaise [Unknown]
  - Pain [Unknown]
  - Hypoaesthesia [Unknown]
  - Gastrointestinal perforation [Fatal]
  - Constipation [Unknown]
  - Disease progression [Fatal]
  - Gastrointestinal anastomotic leak [Unknown]

NARRATIVE: CASE EVENT DATE: 20140625
